FAERS Safety Report 23970620 (Version 2)
Quarter: 2024Q2

REPORT INFORMATION
  Report Type: Spontaneous
  Country: BR (occurrence: BR)
  Receive Date: 20240613
  Receipt Date: 20240621
  Transmission Date: 20240715
  Serious: Yes (Other)
  Sender: FDA-Public Use
  Company Number: BR-BAXTER-2024BAX018987

PATIENT
  Age: 47 Year
  Sex: Male

DRUGS (2)
  1. IRON [Suspect]
     Active Substance: IRON
     Indication: Anaemia
     Dosage: 2 AMPOULE DILUTED IN 500 ML (MILLILITRE) OF 0.9% SALINE SOLUTION
     Route: 042
  2. SODIUM CHLORIDE [Suspect]
     Active Substance: SODIUM CHLORIDE
     Indication: Medication dilution
     Dosage: 500 ML (MILLILITRE) OF 0.9% SALINE SOLUTION USED TO DILUTE 2 AMPOULES OF SUCROFER
     Route: 042

REACTIONS (5)
  - Hypersensitivity [Unknown]
  - Paraesthesia [Unknown]
  - Oedema peripheral [Unknown]
  - Erythema [Unknown]
  - Flushing [Unknown]

NARRATIVE: CASE EVENT DATE: 20240510
